FAERS Safety Report 8224231-8 (Version None)
Quarter: 2012Q1

REPORT INFORMATION
  Report Type: 
  Country: None (occurrence: None)
  Receive Date: 20120321
  Receipt Date: 20120316
  Transmission Date: 20120608
  Serious: Yes (Life-Threatening, Hospitalization, Other)
  Sender: FDA-Public Use
  Company Number: DE-CUBIST-2012S1000119

PATIENT
  Age: 48 Year
  Sex: Male
  Weight: 87 kg

DRUGS (13)
  1. CUBICIN [Suspect]
     Indication: ENDOCARDITIS STAPHYLOCOCCAL
     Route: 042
     Dates: start: 20110801, end: 20110801
  2. STAPHYLEX /00239102/ [Suspect]
     Indication: ENDOCARDITIS
     Dosage: DOSE UNIT:U UNKNOWN
     Route: 065
     Dates: start: 20110720, end: 20110804
  3. MAGNESIUM HYDROGEN ASPARTATE [Concomitant]
     Indication: PRODUCT USED FOR UNKNOWN INDICATION
     Dosage: DOSE UNIT:U UNKNOWN
     Route: 065
     Dates: end: 20110803
  4. CEFUROXIME [Concomitant]
     Indication: PRODUCT USED FOR UNKNOWN INDICATION
     Dosage: DOSE UNIT:U UNKNOWN
     Route: 065
     Dates: start: 20110810, end: 20110811
  5. CUBICIN [Suspect]
     Route: 042
     Dates: start: 20110801, end: 20110825
  6. AMIODARONE HYDROCHLORIDE [Concomitant]
     Indication: PRODUCT USED FOR UNKNOWN INDICATION
     Dosage: DOSE UNIT:U UNKNOWN
     Route: 065
     Dates: start: 20110728, end: 20110803
  7. OXACILLIN [Concomitant]
     Indication: PRODUCT USED FOR UNKNOWN INDICATION
     Dosage: DOSE UNIT:U UNKNOWN
     Route: 065
  8. HEPARIN [Concomitant]
     Indication: PRODUCT USED FOR UNKNOWN INDICATION
     Dosage: DOSE UNIT:U UNKNOWN
     Route: 065
     Dates: start: 20110716, end: 20110901
  9. CUBICIN [Suspect]
     Indication: ENDOCARDITIS
     Route: 042
     Dates: start: 20110801, end: 20110801
  10. RIFAMPICIN [Suspect]
     Route: 042
  11. CUBICIN [Suspect]
     Route: 042
     Dates: start: 20110801, end: 20110825
  12. RIFAMPICIN [Suspect]
     Indication: PRODUCT USED FOR UNKNOWN INDICATION
     Route: 048
     Dates: start: 20110720, end: 20110804
  13. PANTOPRAZOLE SODIUM [Concomitant]
     Indication: PRODUCT USED FOR UNKNOWN INDICATION
     Dosage: DOSE UNIT:U UNKNOWN
     Route: 065
     Dates: start: 20110716

REACTIONS (8)
  - RENAL FAILURE [None]
  - CARDIOGENIC SHOCK [None]
  - BLOOD CREATINE PHOSPHOKINASE INCREASED [None]
  - ENDOCARDITIS STAPHYLOCOCCAL [None]
  - WEIGHT DECREASED [None]
  - IMPLANT SITE ABSCESS [None]
  - URINE FLOW DECREASED [None]
  - DRUG INEFFECTIVE [None]
